FAERS Safety Report 5074142-4 (Version None)
Quarter: 2006Q3

REPORT INFORMATION
  Report Type: 
  Country: None (occurrence: None)
  Receive Date: 20060808
  Receipt Date: 19970918
  Transmission Date: 20061208
  Serious: Yes (Other)
  Sender: FDA-Public Use
  Company Number: DE-BRISTOL-MYERS SQUIBB COMPANY-13461652

PATIENT
  Sex: Female

DRUGS (3)
  1. TAXOL [Suspect]
     Indication: OVARIAN CANCER
     Dates: start: 19970425, end: 19970715
  2. CARBOPLATIN [Suspect]
  3. HYCAMTIN [Suspect]
     Indication: THROMBOSIS PROPHYLAXIS

REACTIONS (4)
  - GAIT DISTURBANCE [None]
  - MALIGNANT NEOPLASM PROGRESSION [None]
  - NEUROTOXICITY [None]
  - PARAESTHESIA [None]
